FAERS Safety Report 15371142 (Version 1)
Quarter: 2018Q3

REPORT INFORMATION
  Report Type: Spontaneous
  Country: FR (occurrence: FR)
  Receive Date: 20180911
  Receipt Date: 20180911
  Transmission Date: 20181010
  Serious: Yes (Hospitalization, Congenital Anomaly)
  Sender: FDA-Public Use
  Company Number: FR-BAXTER-2018BAX023097

PATIENT
  Age: 0 Day
  Sex: Female
  Weight: 2.15 kg

DRUGS (6)
  1. FLUOROURACILE ACCORD [Concomitant]
     Active Substance: FLUOROURACIL
     Indication: BREAST CANCER
     Route: 064
  2. ENDOXAN 1000 MG, POUDRE POUR SOLUTIONINJECTABLE [Suspect]
     Active Substance: CYCLOPHOSPHAMIDE
     Indication: BREAST CANCER
     Route: 065
  3. LEVEMIR [Concomitant]
     Active Substance: INSULIN DETEMIR
     Indication: TYPE 1 DIABETES MELLITUS
     Route: 064
     Dates: start: 20170819, end: 20180411
  4. PACLITAXEL ACCORD [Suspect]
     Active Substance: PACLITAXEL
     Indication: BREAST CANCER
     Route: 064
  5. HERCEPTIN [Suspect]
     Active Substance: TRASTUZUMAB
     Indication: BREAST CANCER
     Dosage: STRENGTH: 600 MG/5ML, SOLUTION INJECTABLE
     Route: 064
     Dates: start: 20170819, end: 20171027
  6. EPIRUBICINE MEDAC [Suspect]
     Active Substance: EPIRUBICIN HYDROCHLORIDE
     Indication: BREAST CANCER
     Route: 064

REACTIONS (5)
  - Hypertonia [Recovered/Resolved]
  - Premature baby [Recovered/Resolved]
  - Neonatal anoxia [Not Recovered/Not Resolved]
  - Agitation neonatal [Recovered/Resolved]
  - Tremor [Recovered/Resolved]

NARRATIVE: CASE EVENT DATE: 20180411
